FAERS Safety Report 15661969 (Version 2)
Quarter: 2018Q4

REPORT INFORMATION
  Report Type: Spontaneous
  Country: DE (occurrence: DE)
  Receive Date: 20181127
  Receipt Date: 20181128
  Transmission Date: 20190205
  Serious: Yes (Life-Threatening, Hospitalization, Other)
  Sender: FDA-Public Use
  Company Number: DE-DSJP-DSE-2018-150039

PATIENT

DRUGS (7)
  1. TORASEMID [Concomitant]
     Active Substance: TORSEMIDE
     Indication: OEDEMA
     Dosage: 1 DF, AS NEEDED
  2. NORSPAN [Concomitant]
     Active Substance: BUPRENORPHINE
     Indication: PRODUCT USED FOR UNKNOWN INDICATION
     Dosage: ()
     Route: 062
  3. AMITRIPTYLINE [Concomitant]
     Active Substance: AMITRIPTYLINE
     Indication: PRODUCT USED FOR UNKNOWN INDICATION
     Dosage: DAILY DOSE: 1 DF DOSAGE FORM EVERY DAYS
  4. OLMESARTAN MEDOXOMIL. [Suspect]
     Active Substance: OLMESARTAN MEDOXOMIL
     Indication: HYPERTENSION
     Dosage: 40/25 MG QD
     Route: 048
     Dates: start: 20170720, end: 20180523
  5. BISOPROLOL [Concomitant]
     Active Substance: BISOPROLOL
     Indication: HYPERTENSION
     Dosage: 5 MG, QD
     Route: 048
  6. PANTOPRAZOL                        /01263201/ [Concomitant]
     Active Substance: PANTOPRAZOLE
     Indication: PRODUCT USED FOR UNKNOWN INDICATION
     Dosage: DAILY DOSE: 20 MG MILLGRAM(S) EVERY DAYS
     Route: 048
  7. OXAZEPAM AL [Concomitant]
     Indication: PRODUCT USED FOR UNKNOWN INDICATION
     Dosage: DAILY DOSE: 1 DF DOSAGE FORM EVERY AS NECESSARY ; AS NECESSARY

REACTIONS (8)
  - Hypotension [Recovering/Resolving]
  - Cachexia [Recovering/Resolving]
  - Malabsorption [Recovering/Resolving]
  - Enteritis [Recovering/Resolving]
  - Diarrhoea [Recovering/Resolving]
  - Dehydration [Recovering/Resolving]
  - Nausea [Recovering/Resolving]
  - Weight decreased [Unknown]

NARRATIVE: CASE EVENT DATE: 201803
